FAERS Safety Report 9710769 (Version 1)
Quarter: 2013Q4

REPORT INFORMATION
  Report Type: Spontaneous
  Country: US (occurrence: US)
  Receive Date: 20131126
  Receipt Date: 20131126
  Transmission Date: 20140711
  Serious: No
  Sender: FDA-Public Use
  Company Number: US-BRISTOL-MYERS SQUIBB COMPANY-18988014

PATIENT
  Age: 55 Year
  Sex: Male
  Weight: 101.58 kg

DRUGS (2)
  1. BYETTA [Suspect]
     Indication: TYPE 2 DIABETES MELLITUS
     Dosage: 5MCG BID IN THE BEGINNING OF XXMAY2013
     Dates: start: 201305
  2. METFORMIN HCL [Suspect]
     Route: 048

REACTIONS (1)
  - Hypoglycaemia [Unknown]
